FAERS Safety Report 6851063-5 (Version None)
Quarter: 2010Q3

REPORT INFORMATION
  Report Type: 
  Country: None (occurrence: None)
  Receive Date: 20100716
  Receipt Date: 20071028
  Transmission Date: 20110219
  Serious: No
  Sender: FDA-Public Use
  Company Number: US-PFIZER INC-2007090885

PATIENT
  Sex: Female
  Weight: 65.8 kg

DRUGS (7)
  1. CHANTIX [Suspect]
     Indication: SMOKING CESSATION THERAPY
     Dates: start: 20071019
  2. WARFARIN SODIUM [Concomitant]
     Indication: VERTIGO
  3. HYZAAR [Concomitant]
     Indication: VERTIGO
  4. ALL OTHER THERAPEUTIC PRODUCTS [Concomitant]
     Indication: VERTIGO
  5. ZYRTEC [Concomitant]
     Indication: HYPERSENSITIVITY
  6. TOPROL-XL [Concomitant]
     Indication: HYPERTENSION
  7. ACETYLSALICYLIC ACID [Concomitant]

REACTIONS (1)
  - NAUSEA [None]
